FAERS Safety Report 4390504-2 (Version None)
Quarter: 2004Q2

REPORT INFORMATION
  Report Type: 
  Country: None (occurrence: None)
  Receive Date: 20040630
  Receipt Date: 20040630
  Transmission Date: 20050107
  Serious: Yes (Hospitalization)
  Sender: FDA-Public Use
  Company Number: None

PATIENT
  Sex: Female
  Weight: 84.2 kg

DRUGS (9)
  1. ZESTRIL [Suspect]
     Indication: CARDIAC FAILURE CONGESTIVE
     Dosage: 20 MG PO QD/ 4-5 YEARS
     Route: 048
  2. SYNTHROID [Concomitant]
  3. CA ACETATE [Concomitant]
  4. VITAMIN C [Concomitant]
  5. MULTI-VITAMINS [Concomitant]
  6. NEURONTIN [Concomitant]
  7. REGLAN [Concomitant]
  8. COUMADIN [Concomitant]
  9. COREG [Concomitant]

REACTIONS (7)
  - CONFUSIONAL STATE [None]
  - ERUCTATION [None]
  - FLATULENCE [None]
  - HYPERTENSION [None]
  - HYPOTENSION [None]
  - RENAL FAILURE ACUTE [None]
  - VOMITING [None]
